FAERS Safety Report 5611241-X (Version None)
Quarter: 2008Q1

REPORT INFORMATION
  Report Type: 
  Country: None (occurrence: None)
  Receive Date: 20080201
  Receipt Date: 20080123
  Transmission Date: 20080703
  Serious: Yes (Hospitalization)
  Sender: FDA-Public Use
  Company Number: PHHO2008CO00873

PATIENT
  Age: 88 Year
  Sex: Male
  Weight: 59 kg

DRUGS (4)
  1. NATEGLINIDE [Suspect]
     Indication: GLUCOSE TOLERANCE IMPAIRED
     Dosage: LEVEL 1
     Route: 048
     Dates: start: 20020619
  2. NATEGLINIDE [Suspect]
     Dosage: LEVEL 2
     Route: 048
  3. VALSARTAN [Suspect]
     Indication: CARDIOVASCULAR DISORDER
     Dosage: LEVEL 1
     Route: 048
  4. VALSARTAN [Suspect]
     Dosage: LEVEL 2
     Route: 048

REACTIONS (2)
  - BLOOD SODIUM DECREASED [None]
  - ELECTROLYTE IMBALANCE [None]
